FAERS Safety Report 18113262 (Version 4)
Quarter: 2022Q1

REPORT INFORMATION
  Report Type: Spontaneous
  Country: US (occurrence: US)
  Receive Date: 20200805
  Receipt Date: 20220324
  Transmission Date: 20220423
  Serious: Yes (Other)
  Sender: FDA-Public Use
  Company Number: US-PFIZER INC-2020294829

PATIENT
  Age: 49 Year
  Sex: Female
  Weight: 81.9 kg

DRUGS (11)
  1. XELJANZ [Suspect]
     Active Substance: TOFACITINIB CITRATE
     Indication: Rheumatoid arthritis
     Dosage: 5 MG, 2X/DAY
     Route: 048
     Dates: start: 20200701
  2. XELJANZ XR [Suspect]
     Active Substance: TOFACITINIB CITRATE
     Indication: Rheumatoid arthritis
     Dosage: 11 MG, DAILY
     Route: 048
  3. SYNTHROID [Concomitant]
     Active Substance: LEVOTHYROXINE SODIUM
     Indication: Autoimmune thyroiditis
     Dosage: 0.125 MG, DAILY
     Route: 048
     Dates: start: 20200701
  4. METHOTREXATE [Concomitant]
     Active Substance: METHOTREXATE
     Dosage: WEEKLY
     Route: 058
  5. COZAAR [Concomitant]
     Active Substance: LOSARTAN POTASSIUM
     Dosage: 25 MG, DAILY
     Route: 048
  6. PANTOPRAZOLE [Concomitant]
     Active Substance: PANTOPRAZOLE
     Dosage: 40 MG, DAILY
     Route: 048
  7. REQUIP [Concomitant]
     Active Substance: ROPINIROLE HYDROCHLORIDE
     Dosage: 0.5 MG, 1X/DAY
     Route: 048
  8. WELLBUTRIN XL [Concomitant]
     Active Substance: BUPROPION HYDROCHLORIDE
     Dosage: 150 MG, DAILY
     Route: 048
  9. CRESTOR [Concomitant]
     Active Substance: ROSUVASTATIN CALCIUM
     Dosage: 10 MG, DAILY
     Route: 048
  10. FOLIC ACID [Concomitant]
     Active Substance: FOLIC ACID
     Dosage: 1 MG, DAILY
     Route: 048
  11. PREDNISONE [Concomitant]
     Active Substance: PREDNISONE
     Dosage: 5 MG, DAILY
     Route: 048

REACTIONS (20)
  - Peptic ulcer [Recovering/Resolving]
  - Therapeutic product effect incomplete [Unknown]
  - COVID-19 [Unknown]
  - Pre-existing condition improved [Unknown]
  - Blood pressure increased [Recovering/Resolving]
  - Initial insomnia [Unknown]
  - Pain [Unknown]
  - Liver function test increased [Recovering/Resolving]
  - Thyroid function test abnormal [Unknown]
  - Condition aggravated [Unknown]
  - Pain in extremity [Unknown]
  - Musculoskeletal stiffness [Unknown]
  - Joint swelling [Unknown]
  - Arthralgia [Unknown]
  - Joint warmth [Unknown]
  - Myalgia [Unknown]
  - Muscular weakness [Unknown]
  - Metatarsalgia [Unknown]
  - Ulcer [Unknown]
  - Synovitis [Unknown]

NARRATIVE: CASE EVENT DATE: 20200101
